FAERS Safety Report 18246539 (Version 3)
Quarter: 2020Q3

REPORT INFORMATION
  Report Type: Report from Study
  Country: HN (occurrence: HN)
  Receive Date: 20200909
  Receipt Date: 20200928
  Transmission Date: 20201103
  Serious: Yes (Death, Hospitalization, Other)
  Sender: FDA-Public Use
  Company Number: NVSC2020HN244513

PATIENT
  Age: 77 Year
  Sex: Female

DRUGS (3)
  1. VYMADA [Suspect]
     Active Substance: SACUBITRIL\VALSARTAN
     Dosage: 100 MG, QD, 1 OF 100MG
     Route: 065
     Dates: start: 2019, end: 20191224
  2. VYMADA [Suspect]
     Active Substance: SACUBITRIL\VALSARTAN
     Indication: BLOOD PRESSURE ABNORMAL
     Dosage: 1 DF, UNKNOWN (50 MG)
     Route: 065
  3. VYMADA [Suspect]
     Active Substance: SACUBITRIL\VALSARTAN
     Indication: HYPERTENSION
     Dosage: 1 DF, QD (50 MG)
     Route: 065

REACTIONS (15)
  - Blood cholesterol increased [Unknown]
  - Fluid retention [Unknown]
  - Oedema peripheral [Unknown]
  - Blood glucose increased [Unknown]
  - Infarction [Unknown]
  - Pulmonary oedema [Unknown]
  - Swelling [Unknown]
  - Tongue discolouration [Unknown]
  - Back pain [Unknown]
  - Cardiac arrest [Fatal]
  - Inappropriate schedule of product administration [Unknown]
  - General physical health deterioration [Unknown]
  - Cardiomegaly [Unknown]
  - Product use in unapproved indication [Unknown]
  - Tremor [Unknown]

NARRATIVE: CASE EVENT DATE: 20191224
